FAERS Safety Report 4833751-5 (Version None)
Quarter: 2005Q4

REPORT INFORMATION
  Report Type: 
  Country: None (occurrence: None)
  Receive Date: 20051118
  Receipt Date: 20051107
  Transmission Date: 20060501
  Serious: Yes (Death)
  Sender: FDA-Public Use
  Company Number: 2005-BP-19346RO

PATIENT
  Age: 43 Year
  Sex: Male

DRUGS (2)
  1. COCAINE (COCAINE) [Suspect]
  2. ANTIFREEZE (ETHYLENE GLYCOL) (ETHYLENE GLYCOL) [Suspect]

REACTIONS (10)
  - ACIDOSIS [None]
  - BLOOD CREATININE INCREASED [None]
  - BLOOD OSMOLARITY INCREASED [None]
  - BRADYCARDIA [None]
  - FLUID RETENTION [None]
  - HAEMODIALYSIS [None]
  - HYPERKALAEMIA [None]
  - LOSS OF CONSCIOUSNESS [None]
  - OVERDOSE [None]
  - WEIGHT INCREASED [None]
